FAERS Safety Report 10494538 (Version 1)
Quarter: 2014Q4

REPORT INFORMATION
  Report Type: Spontaneous
  Country: NO (occurrence: NO)
  Receive Date: 20141003
  Receipt Date: 20141003
  Transmission Date: 20150528
  Serious: Yes (Other)
  Sender: FDA-Public Use
  Company Number: NO-GE HEALTHCARE MEDICAL DIAGNOSTICS-OMPQ-E2B_00000078

PATIENT
  Age: 30 Year
  Sex: Female

DRUGS (2)
  1. OMNIPAQUE [Suspect]
     Active Substance: IOHEXOL
     Indication: PRODUCT USED FOR UNKNOWN INDICATION
     Route: 051
     Dates: start: 20140826, end: 20140826
  2. OMNIPAQUE [Suspect]
     Active Substance: IOHEXOL
     Indication: DIAGNOSTIC PROCEDURE

REACTIONS (3)
  - Sneezing [Unknown]
  - Rhinorrhoea [Unknown]
  - Respiratory distress [Unknown]

NARRATIVE: CASE EVENT DATE: 20140826
